FAERS Safety Report 13131786 (Version 2)
Quarter: 2017Q4

REPORT INFORMATION
  Report Type: Spontaneous
  Country: US (occurrence: US)
  Receive Date: 20170119
  Receipt Date: 20171128
  Transmission Date: 20180320
  Serious: Yes (Death, Hospitalization)
  Sender: FDA-Public Use
  Company Number: US-SIGMA-TAU US-2017STPI000007

PATIENT
  Age: 90 Year
  Sex: Male

DRUGS (7)
  1. LOVASTATIN. [Concomitant]
     Active Substance: LOVASTATIN
  2. COLACE [Concomitant]
     Active Substance: DOCUSATE SODIUM
  3. NITRO-DUR [Concomitant]
     Active Substance: NITROGLYCERIN
  4. PREDNISONE. [Concomitant]
     Active Substance: PREDNISONE
  5. MEMANTINE. [Concomitant]
     Active Substance: MEMANTINE
  6. ASPIRIN                            /00002701/ [Concomitant]
     Active Substance: ASPIRIN
  7. MATULANE [Suspect]
     Active Substance: PROCARBAZINE HYDROCHLORIDE
     Indication: NON-HODGKIN^S LYMPHOMA
     Dosage: 100 MG, QD
     Route: 048
     Dates: start: 20160923

REACTIONS (3)
  - Pericardial effusion [Unknown]
  - Death [Fatal]
  - Pleural effusion [Unknown]

NARRATIVE: CASE EVENT DATE: 20161223
